FAERS Safety Report 19376574 (Version 1)
Quarter: 2021Q2

REPORT INFORMATION
  Report Type: Spontaneous
  Country: US (occurrence: US)
  Receive Date: 20210604
  Receipt Date: 20210604
  Transmission Date: 20210717
  Serious: Yes (Life-Threatening, Hospitalization)
  Sender: FDA-Public Use
  Company Number: US-MYLANLABS-2021M1032360

PATIENT
  Age: 27 Year
  Sex: Male

DRUGS (1)
  1. BACLOFEN. [Suspect]
     Active Substance: BACLOFEN
     Indication: PRODUCT USED FOR UNKNOWN INDICATION
     Dosage: INGESTED OVERDOSE
     Route: 048

REACTIONS (5)
  - Encephalopathy [Recovering/Resolving]
  - Drug withdrawal syndrome [Recovering/Resolving]
  - Intentional overdose [Recovering/Resolving]
  - Agitation [Recovering/Resolving]
  - Catatonia [Recovering/Resolving]
